FAERS Safety Report 10175683 (Version 1)
Quarter: 2014Q2

REPORT INFORMATION
  Report Type: Report from Study
  Country: US (occurrence: US)
  Receive Date: 20140516
  Receipt Date: 20140516
  Transmission Date: 20141212
  Serious: Yes (Other)
  Sender: FDA-Public Use
  Company Number: US-ROCHE-1399168

PATIENT
  Sex: Male

DRUGS (6)
  1. AVASTIN [Suspect]
     Indication: RETINAL VASCULAR OCCLUSION
     Route: 065
  2. METFORMIN [Concomitant]
     Indication: DIABETES MELLITUS
     Route: 065
  3. ALLOPURINOL [Concomitant]
     Indication: GOUT
     Route: 065
  4. DONEPEZIL [Concomitant]
     Indication: COGNITIVE DISORDER
     Route: 065
  5. BABY ASPIRIN [Concomitant]
  6. SIMVASTATIN [Concomitant]
     Indication: GOUT

REACTIONS (1)
  - Ocular hyperaemia [Recovered/Resolved]
